FAERS Safety Report 5938175-5 (Version None)
Quarter: 2008Q4

REPORT INFORMATION
  Report Type: 
  Country: None (occurrence: None)
  Receive Date: 20081031
  Receipt Date: 20081024
  Transmission Date: 20090506
  Serious: Yes (Hospitalization)
  Sender: FDA-Public Use
  Company Number: US-B.I. PHARMACEUTICALS,INC./RIDGEFIELD-2008-BP-16315BP

PATIENT
  Age: 79 Year
  Sex: Female

DRUGS (3)
  1. MIRAPEX [Suspect]
     Indication: PARKINSON'S DISEASE
     Dosage: 1MG
     Route: 048
     Dates: start: 20030101
  2. VALTREX [Suspect]
     Indication: HERPES ZOSTER
     Dates: start: 20081021
  3. MICARDIS [Suspect]
     Dates: start: 20070101

REACTIONS (6)
  - FALL [None]
  - FEELING JITTERY [None]
  - FRACTURE [None]
  - HERPES ZOSTER [None]
  - HYPOTONIA [None]
  - MYOCARDIAL INFARCTION [None]
